FAERS Safety Report 5396417-1 (Version None)
Quarter: 2007Q3

REPORT INFORMATION
  Report Type: 
  Country: None (occurrence: None)
  Receive Date: 20070725
  Receipt Date: 20070718
  Transmission Date: 20080115
  Serious: Yes (Other)
  Sender: FDA-Public Use
  Company Number: US-AVENTIS-200716593GDDC

PATIENT
  Age: 73 Year
  Sex: Female

DRUGS (6)
  1. FLUOROURACIL [Suspect]
     Indication: METASTATIC RENAL CELL CARCINOMA
  2. INTERFERON [Suspect]
     Indication: METASTATIC RENAL CELL CARCINOMA
  3. GEMCITABINE HCL [Suspect]
     Indication: METASTATIC RENAL CELL CARCINOMA
  4. CAPECITABINE [Suspect]
     Indication: METASTATIC RENAL CELL CARCINOMA
  5. INTERFERON A [Concomitant]
     Indication: METASTATIC RENAL CELL CARCINOMA
  6. FLOXURIDINE [Concomitant]
     Indication: METASTATIC RENAL CELL CARCINOMA

REACTIONS (1)
  - PULMONARY ARTERIOVENOUS FISTULA [None]
